FAERS Safety Report 16604446 (Version 1)
Quarter: 2019Q3

REPORT INFORMATION
  Report Type: Spontaneous
  Country: US (occurrence: US)
  Receive Date: 20190721
  Receipt Date: 20190721
  Transmission Date: 20191004
  Serious: No
  Sender: FDA-Public Use
  Company Number: US-GALDERMA-US18045948

PATIENT
  Age: 46 Year
  Sex: Female

DRUGS (1)
  1. DIFFERIN GEL [Suspect]
     Active Substance: ADAPALENE
     Indication: ACNE
     Dosage: 0.1%
     Route: 061

REACTIONS (4)
  - Inappropriate schedule of product administration [Recovered/Resolved]
  - Erythema [Unknown]
  - Underdose [Recovered/Resolved]
  - Skin exfoliation [Unknown]
